FAERS Safety Report 15387966 (Version 3)
Quarter: 2018Q4

REPORT INFORMATION
  Report Type: Spontaneous
  Country: ES (occurrence: ES)
  Receive Date: 20180915
  Receipt Date: 20181227
  Transmission Date: 20190204
  Serious: Yes (Hospitalization, Other)
  Sender: FDA-Public Use
  Company Number: ES-AUROBINDO-AUR-APL-2018-045404

PATIENT
  Age: 43 Year
  Sex: Female

DRUGS (4)
  1. METAMIZOLE [Suspect]
     Active Substance: METAMIZOLE
     Indication: EAR INFECTION
     Dosage: UNK
     Route: 048
     Dates: start: 20180618, end: 2018
  2. AMOXICILLIN. [Suspect]
     Active Substance: AMOXICILLIN
     Indication: EAR INFECTION
     Dosage: UNK
     Route: 048
     Dates: start: 20180630, end: 20180709
  3. CEFACLOR. [Suspect]
     Active Substance: CEFACLOR
     Indication: EAR INFECTION
     Dosage: UNK
     Route: 048
     Dates: start: 20180710, end: 20180713
  4. FLUCONAZOLE. [Suspect]
     Active Substance: FLUCONAZOLE
     Indication: EAR INFECTION
     Dosage: UNK
     Route: 048
     Dates: start: 20180730, end: 20180806

REACTIONS (1)
  - Erythema multiforme [Recovering/Resolving]

NARRATIVE: CASE EVENT DATE: 20180801
